FAERS Safety Report 21292745 (Version 1)
Quarter: 2022Q3

REPORT INFORMATION
  Report Type: Spontaneous
  Country: US (occurrence: US)
  Receive Date: 20220905
  Receipt Date: 20220905
  Transmission Date: 20221027
  Serious: No
  Sender: FDA-Public Use
  Company Number: US-NEBO-PC008972

PATIENT
  Age: 79 Year
  Sex: Female

DRUGS (2)
  1. MONOFERRIC [Suspect]
     Active Substance: FERRIC DERISOMALTOSE
     Indication: Product used for unknown indication
     Route: 050
     Dates: start: 20220805
  2. IODINE [Concomitant]
     Active Substance: IODINE
     Indication: Computerised tomogram

REACTIONS (6)
  - Abdominal pain upper [Unknown]
  - Disorientation [Unknown]
  - Pain in extremity [Unknown]
  - Hyperhidrosis [Unknown]
  - Erythema [Recovering/Resolving]
  - Peripheral swelling [Recovered/Resolved]

NARRATIVE: CASE EVENT DATE: 20220805
